FAERS Safety Report 5931538-3 (Version None)
Quarter: 2008Q4

REPORT INFORMATION
  Report Type: 
  Country: None (occurrence: None)
  Receive Date: 20081027
  Receipt Date: 20081017
  Transmission Date: 20090506
  Serious: Yes (Hospitalization)
  Sender: FDA-Public Use
  Company Number: B0540543A

PATIENT
  Age: 25 Year
  Sex: Female

DRUGS (4)
  1. COMBIVIR [Suspect]
     Indication: HIV INFECTION
     Dosage: 1TAB TWICE PER DAY
     Route: 048
     Dates: start: 20080219, end: 20080222
  2. KIVEXA [Suspect]
     Indication: HIV INFECTION
     Route: 065
     Dates: start: 20080201
  3. NORVIR [Concomitant]
     Indication: HIV INFECTION
     Route: 065
     Dates: start: 20080219
  4. INVIRASE [Concomitant]
     Indication: HIV INFECTION
     Route: 065
     Dates: start: 20080219

REACTIONS (3)
  - DIARRHOEA [None]
  - DRUG EXPOSURE DURING PREGNANCY [None]
  - VOMITING [None]
